FAERS Safety Report 10970963 (Version 3)
Quarter: 2015Q2

REPORT INFORMATION
  Report Type: Report from Study
  Country: CA (occurrence: CA)
  Receive Date: 20150331
  Receipt Date: 20150623
  Transmission Date: 20150821
  Serious: Yes (Other)
  Sender: FDA-Public Use
  Company Number: CA-ABBVIE-14K-028-1258389-00

PATIENT
  Age: 68 Year
  Sex: Male
  Weight: 127.12 kg

DRUGS (1)
  1. HUMIRA [Suspect]
     Active Substance: ADALIMUMAB
     Indication: PSORIASIS
     Route: 058
     Dates: start: 20110629

REACTIONS (2)
  - Hernia pain [Recovered/Resolved]
  - Abdominal wound dehiscence [Not Recovered/Not Resolved]

NARRATIVE: CASE EVENT DATE: 20140628
